FAERS Safety Report 11610890 (Version 1)
Quarter: 2015Q4

REPORT INFORMATION
  Report Type: Spontaneous
  Country: US (occurrence: US)
  Receive Date: 20151008
  Receipt Date: 20151008
  Transmission Date: 20160304
  Serious: No
  Sender: FDA-Public Use
  Company Number: US-APOTEX-2015AP007281

PATIENT
  Age: 49 Year
  Sex: Female

DRUGS (2)
  1. MIDAZOLAM HYDROCHLORIDE INJECTION [Suspect]
     Active Substance: MIDAZOLAM HYDROCHLORIDE
     Indication: SEDATION
     Dosage: 2 MG, REPEATED THREE TIMES
     Route: 042
  2. METHOHEXITAL [Suspect]
     Active Substance: METHOHEXITAL
     Indication: SEDATION
     Dosage: 30 MG, REPEATED THREE TIMES
     Route: 042

REACTIONS (2)
  - Insomnia [Unknown]
  - Drug ineffective [Unknown]
